FAERS Safety Report 7449259-7 (Version None)
Quarter: 2011Q2

REPORT INFORMATION
  Report Type: 
  Country: None (occurrence: None)
  Receive Date: 20110502
  Receipt Date: 20110412
  Transmission Date: 20111010
  Serious: Yes (Death, Other)
  Sender: FDA-Public Use
  Company Number: US-BAYER-201011334NA

PATIENT
  Age: 55 Year
  Sex: Male

DRUGS (22)
  1. HEXTEND [Concomitant]
     Indication: PRODUCT USED FOR UNKNOWN INDICATION
  2. CARDIOLITE [Concomitant]
     Dosage: 25.9 MCI
     Dates: start: 20051209
  3. THALLIUM (201 TL) [Concomitant]
     Dosage: 4.1 MCI
     Dates: start: 20061227
  4. ACETYLSALICYLIC ACID SRT [Concomitant]
     Route: 048
  5. LASIX [Concomitant]
     Dosage: 40 MG, UNK
     Route: 048
  6. TRASYLOL [Suspect]
     Indication: CORONARY ARTERY BYPASS
     Dates: start: 20071103
  7. THALLIUM (201 TL) [Concomitant]
     Dosage: 4.1 MCI
     Dates: start: 20051209
  8. CARDIOLITE [Concomitant]
     Dosage: 27.5 MCI
     Dates: start: 20061227
  9. COUMADIN [Concomitant]
     Dosage: UNK
     Route: 048
     Dates: start: 20051106
  10. GLUCOPHAGE [Concomitant]
     Route: 048
  11. LOPRESSOR [Concomitant]
     Dosage: 25 MG, UNK
     Route: 048
  12. TORSEMIDE [Concomitant]
     Indication: PRODUCT USED FOR UNKNOWN INDICATION
  13. MOXIFLOXACIN [Concomitant]
     Dosage: 400 MG, QD
     Route: 048
     Dates: start: 20070607
  14. REMERON [Concomitant]
     Dosage: 45 MG, QD
     Route: 048
  15. LASIX [Concomitant]
     Indication: PRODUCT USED FOR UNKNOWN INDICATION
  16. ZAROXOLYN [Concomitant]
     Indication: PRODUCT USED FOR UNKNOWN INDICATION
  17. VFEND [Concomitant]
     Dosage: 200 MG, BID
     Route: 048
     Dates: start: 20070627
  18. CARDIZEM LA [Concomitant]
     Dosage: 240 MG, QD
     Route: 048
  19. EFFEXOR XR [Concomitant]
     Dosage: 75 MG, QD
     Route: 048
  20. PREVACID [Concomitant]
     Dosage: 40 MG, QD
     Route: 048
  21. RED BLOOD CELLS [Concomitant]
     Indication: PRODUCT USED FOR UNKNOWN INDICATION
  22. DIGOXIN [Concomitant]
     Dosage: 0.125 MG, QD
     Route: 048

REACTIONS (14)
  - CEREBROVASCULAR ACCIDENT [None]
  - CARDIAC DISORDER [None]
  - ANHEDONIA [None]
  - INJURY [None]
  - DEATH [None]
  - FEAR [None]
  - ORGAN FAILURE [None]
  - RENAL IMPAIRMENT [None]
  - UNEVALUABLE EVENT [None]
  - PAIN [None]
  - RENAL INJURY [None]
  - DEPRESSION [None]
  - RENAL FAILURE [None]
  - ANXIETY [None]
